FAERS Safety Report 22330791 (Version 1)
Quarter: 2023Q2

REPORT INFORMATION
  Report Type: Spontaneous
  Country: US (occurrence: None)
  Receive Date: 20230515
  Receipt Date: 20230515
  Transmission Date: 20230721
  Serious: Yes (Disabling)
  Sender: FDA-Public Use
  Company Number: None

PATIENT
  Age: 51 Year
  Sex: Female
  Weight: 57.15 kg

DRUGS (1)
  1. LIDOCAINE HYDROCHLORIDE [Suspect]
     Active Substance: LIDOCAINE HYDROCHLORIDE
     Indication: Pain
     Dosage: OTHER QUANTITY : 1 TEASPOON(S);?FREQUENCY : AS NEEDED;?
     Route: 048

REACTIONS (2)
  - Depression [None]
  - Tongue neoplasm malignant stage unspecified [None]

NARRATIVE: CASE EVENT DATE: 20220701
